FAERS Safety Report 20962371 (Version 1)
Quarter: 2022Q2

REPORT INFORMATION
  Report Type: Report from Study
  Country: CR (occurrence: CR)
  Receive Date: 20220615
  Receipt Date: 20220615
  Transmission Date: 20220721
  Serious: Yes (Other)
  Sender: FDA-Public Use
  Company Number: CR-NOVARTISPH-NVSC2020CR264707

PATIENT
  Age: 69 Year
  Weight: 81.179 kg

DRUGS (4)
  1. EXFORGE HCT [Suspect]
     Active Substance: AMLODIPINE BESYLATE\HYDROCHLOROTHIAZIDE\VALSARTAN
     Indication: Blood pressure measurement
     Dosage: UNK
     Route: 065
  2. HYDROCHLOROTHIAZIDE\VALSARTAN [Suspect]
     Active Substance: HYDROCHLOROTHIAZIDE\VALSARTAN
     Indication: Blood pressure measurement
     Dosage: UNK, STARTED APPROXIMATELY 3 YEARS AGO AND STOPPED APPROXIMATELY 2 YEARS AGO
     Route: 065
  3. ESOMEPRAZOLE [Concomitant]
     Active Substance: ESOMEPRAZOLE
     Indication: Blood pressure measurement
     Dosage: 1 DOSAGE FORM, QD
     Route: 048
     Dates: start: 20220606
  4. METFORMIN [Concomitant]
     Active Substance: METFORMIN HYDROCHLORIDE
     Indication: Product used for unknown indication
     Dosage: 2 DOSAGE FORM, BID (ONE IN THE MORNING AND ONE AT NIGHT), STARTED APPROX. ONE YEAR AGO
     Route: 048

REACTIONS (5)
  - Diabetes mellitus [Unknown]
  - Blood pressure decreased [Recovered/Resolved]
  - Colitis [Unknown]
  - Illness [Unknown]
  - Vertigo [Not Recovered/Not Resolved]

NARRATIVE: CASE EVENT DATE: 20210601
